FAERS Safety Report 13424075 (Version 3)
Quarter: 2017Q3

REPORT INFORMATION
  Report Type: Spontaneous
  Country: US (occurrence: US)
  Receive Date: 20170410
  Receipt Date: 20170828
  Transmission Date: 20171127
  Serious: Yes (Other)
  Sender: FDA-Public Use
  Company Number: US-BAYER-2017-067708

PATIENT
  Age: 22 Year
  Sex: Female
  Weight: 61.22 kg

DRUGS (2)
  1. MIRENA [Suspect]
     Active Substance: LEVONORGESTREL
     Indication: CONTRACEPTION
     Dosage: 20 MCG/24HR, CONT
     Route: 015
     Dates: start: 20130408, end: 20140718
  2. ADVIL [Concomitant]
     Active Substance: IBUPROFEN
     Dosage: UNK
     Dates: start: 201106, end: 2013

REACTIONS (9)
  - Uterine perforation [None]
  - Depression [None]
  - Alopecia [None]
  - Anxiety [None]
  - Weight decreased [None]
  - Fatigue [None]
  - Genital haemorrhage [None]
  - Abdominal pain lower [None]
  - Mood swings [None]

NARRATIVE: CASE EVENT DATE: 2013
